FAERS Safety Report 5280167-6 (Version None)
Quarter: 2007Q1

REPORT INFORMATION
  Report Type: 
  Country: None (occurrence: None)
  Receive Date: 20061215
  Receipt Date: 20060112
  Transmission Date: 20070707
  Serious: Yes (Other)
  Sender: FDA-Public Use
  Company Number: HQWYE322713JAN06

PATIENT
  Age: 40 Year
  Sex: Female
  Weight: 81.27 kg

DRUGS (8)
  1. EFFEXOR XR [Suspect]
     Indication: ANXIETY
     Dosage: 75 MG 1X PER 1 DAY, ORAL
     Route: 048
     Dates: start: 20051201, end: 20051201
  2. EFFEXOR XR [Suspect]
     Indication: ANXIETY
     Dosage: 75 MG 1X PER 1 DAY, ORAL
     Route: 048
     Dates: start: 20060111
  3. HYDROCHLOROTHIAZIDE [Concomitant]
  4. POTASSIUM (POTASSIUM) [Concomitant]
  5. RANITIDINE [Concomitant]
  6. FOLIC ACID [Concomitant]
  7. METOCLOPRAMIDE [Concomitant]
  8. UNSPECIFIED ANTIHYPERTENSIVE AGENT (UNSPECIFIED ANTIHYPERTENSIVE AGENT [Concomitant]

REACTIONS (10)
  - ABDOMINAL PAIN UPPER [None]
  - BLOOD PRESSURE INCREASED [None]
  - DIARRHOEA [None]
  - ERUCTATION [None]
  - HEADACHE [None]
  - HYPERHIDROSIS [None]
  - NAUSEA [None]
  - PAIN [None]
  - PALPITATIONS [None]
  - VOMITING [None]
